FAERS Safety Report 17702345 (Version 1)
Quarter: 2020Q2

REPORT INFORMATION
  Report Type: Report from Study
  Country: DE (occurrence: DE)
  Receive Date: 20200424
  Receipt Date: 20200424
  Transmission Date: 20200714
  Serious: Yes (Hospitalization, Other)
  Sender: FDA-Public Use
  Company Number: DE-TEVA-2020-DE-1195929

PATIENT
  Age: 64 Year
  Sex: Female
  Weight: 80 kg

DRUGS (16)
  1. FLUNARIZIN 5 MG [Concomitant]
     Dosage: 0-0-2-0
  2. CINNARIZIN/DYMENHYDRINAT 20/40 MG [Concomitant]
     Dosage: 1-1-1-0
  3. COPAXONE [Suspect]
     Active Substance: GLATIRAMER ACETATE
     Indication: MULTIPLE SCLEROSIS
     Route: 058
     Dates: start: 201506, end: 202001
  4. JOD 200 MICROGRAM [Concomitant]
     Dosage: 1-0-0-0
  5. PANTOPRAZOL 20 MG [Concomitant]
     Active Substance: PANTOPRAZOLE SODIUM
     Dosage: 1-0-1-0
  6. BISOPROLOL 2.5 MG [Concomitant]
     Active Substance: BISOPROLOL
     Dosage: 1-0-1-0
  7. FUROSEMID 40 MG [Concomitant]
     Active Substance: FUROSEMIDE
     Dosage: 1-0-0-0
  8. SATIVEX SPRAY 38.5/41 MG [Concomitant]
     Dosage: 4-0-6
  9. AMITRIPTYLIN 100 MG [Concomitant]
     Dosage: 0-0-0-1.5
  10. CHOLECALCIFEROL 1000 IE [Concomitant]
     Dosage: 1-0-0-0
  11. MAGNESIUM 200 MG BT [Concomitant]
     Dosage: 0-0-2-0
  12. MIRTAZAPIN 30 MG [Concomitant]
     Active Substance: MIRTAZAPINE
     Dosage: 0-0-1-0
  13. TIZANIDIN 4 MG [Concomitant]
     Active Substance: TIZANIDINE
     Dosage: 1-1-0-1
  14. ATORVASTATIN 10 MG [Concomitant]
     Active Substance: ATORVASTATIN
     Dosage: 0-0-1-0
  15. TAMSULOZIN 0.4 MG [Concomitant]
     Dosage: 0-1-0-0
  16. DISTIGMIN KATION 5 MG [Concomitant]
     Dosage: 2-0-0-0

REACTIONS (8)
  - Tremor [Recovered/Resolved]
  - Muscular weakness [Recovered/Resolved]
  - General physical health deterioration [Recovered/Resolved]
  - Paraesthesia [Recovered/Resolved]
  - Dysstasia [Recovered/Resolved]
  - Multiple sclerosis relapse [Recovering/Resolving]
  - Loss of personal independence in daily activities [Recovered/Resolved]
  - Muscle spasms [Recovered/Resolved]

NARRATIVE: CASE EVENT DATE: 201911
